FAERS Safety Report 9891929 (Version 3)
Quarter: 2014Q1

REPORT INFORMATION
  Report Type: Report from Study
  Country: CA (occurrence: CA)
  Receive Date: 20140212
  Receipt Date: 20140307
  Transmission Date: 20141002
  Serious: Yes (Other)
  Sender: FDA-Public Use
  Company Number: CA-ABBVIE-14P-028-1193177-00

PATIENT
  Sex: Male
  Weight: 99.88 kg

DRUGS (6)
  1. HUMIRA [Suspect]
     Indication: RHEUMATOID ARTHRITIS
     Route: 058
     Dates: end: 20131217
  2. HUMIRA [Suspect]
     Route: 058
     Dates: start: 201401
  3. METHOTREXATE [Concomitant]
     Indication: RHEUMATOID ARTHRITIS
     Route: 048
  4. CELEBREX [Concomitant]
     Indication: RHEUMATOID ARTHRITIS
     Route: 048
  5. METOPROLOL [Concomitant]
     Indication: ATRIAL FIBRILLATION
  6. FOLIC ACID [Concomitant]
     Indication: POLYMEDICATION

REACTIONS (2)
  - Cartilage atrophy [Unknown]
  - Osteoarthritis [Unknown]
